FAERS Safety Report 7859237-1 (Version None)
Quarter: 2011Q4

REPORT INFORMATION
  Report Type: 
  Country: None (occurrence: None)
  Receive Date: 20111027
  Receipt Date: 20111027
  Transmission Date: 20120403
  Serious: No
  Sender: FDA-Public Use
  Company Number: None

PATIENT
  Age: 8 Year
  Sex: Male
  Weight: 22.679 kg

DRUGS (2)
  1. INTUNIV [Suspect]
     Indication: TIC
     Dosage: 1 MG
     Route: 048
     Dates: start: 20111026, end: 20111026
  2. INTUNIV [Suspect]
     Indication: ATTENTION DEFICIT/HYPERACTIVITY DISORDER
     Dosage: 1 MG
     Route: 048
     Dates: start: 20111026, end: 20111026

REACTIONS (3)
  - AGGRESSION [None]
  - ANGER [None]
  - IMPULSIVE BEHAVIOUR [None]
